FAERS Safety Report 16108081 (Version 5)
Quarter: 2019Q2

REPORT INFORMATION
  Report Type: Report from Study
  Country: US (occurrence: US)
  Receive Date: 20190322
  Receipt Date: 20190524
  Transmission Date: 20190711
  Serious: Yes (Hospitalization, Other)
  Sender: FDA-Public Use
  Company Number: US-ACTELION-A-NJ2018-171332

PATIENT
  Sex: Female
  Weight: 110.66 kg

DRUGS (6)
  1. REMODULIN [Concomitant]
     Active Substance: TREPROSTINIL
     Dosage: 44 NG/KG
     Route: 042
  2. ADEMPAS [Suspect]
     Active Substance: RIOCIGUAT
     Indication: PRODUCT USED FOR UNKNOWN INDICATION
     Dosage: 2 MG, TID
     Route: 065
     Dates: end: 201903
  3. REMODULIN [Concomitant]
     Active Substance: TREPROSTINIL
     Dosage: 48 NG/KG, PER MIN
     Route: 042
  4. OPSUMIT [Suspect]
     Active Substance: MACITENTAN
     Indication: PULMONARY ARTERIAL HYPERTENSION
     Dosage: 10 MG, QD
     Route: 048
  5. OXYGEN. [Concomitant]
     Active Substance: OXYGEN
     Dosage: UNK
  6. SILDENAFIL. [Concomitant]
     Active Substance: SILDENAFIL
     Dosage: UNK
     Dates: start: 201903

REACTIONS (22)
  - Dyspnoea exertional [Unknown]
  - Gastrooesophageal reflux disease [Unknown]
  - Blood pressure abnormal [Unknown]
  - Dyspepsia [Unknown]
  - Feeling abnormal [Unknown]
  - Muscle spasms [Unknown]
  - Chest pain [Unknown]
  - Pain in jaw [Unknown]
  - Dizziness [Unknown]
  - Condition aggravated [Unknown]
  - Nausea [Unknown]
  - Lung transplant [Unknown]
  - Pain in extremity [Unknown]
  - Dyspnoea [Unknown]
  - Diarrhoea [Not Recovered/Not Resolved]
  - Disease progression [Unknown]
  - Dependence on oxygen therapy [Unknown]
  - Infusion site pain [Unknown]
  - Therapy change [Unknown]
  - Headache [Unknown]
  - Bronchitis [Unknown]
  - Fatigue [Unknown]
